FAERS Safety Report 20356910 (Version 4)
Quarter: 2022Q1

REPORT INFORMATION
  Report Type: Spontaneous
  Country: US (occurrence: US)
  Receive Date: 20220120
  Receipt Date: 20220205
  Transmission Date: 20220423
  Serious: No
  Sender: FDA-Public Use
  Company Number: US-SANOFI-00930046

PATIENT
  Age: 25 Year
  Sex: Female

DRUGS (1)
  1. DUPIXENT [Suspect]
     Active Substance: DUPILUMAB
     Indication: Dermatitis atopic
     Dosage: 300 MG,QOW

REACTIONS (4)
  - Anxiety [Unknown]
  - Dermatitis atopic [Unknown]
  - Incorrect dose administered [Unknown]
  - Product storage error [Unknown]

NARRATIVE: CASE EVENT DATE: 20220101
